FAERS Safety Report 7333497-8 (Version None)
Quarter: 2011Q1

REPORT INFORMATION
  Report Type: 
  Country: None (occurrence: None)
  Receive Date: 20110304
  Receipt Date: 20110303
  Transmission Date: 20110831
  Serious: Yes (Death)
  Sender: FDA-Public Use
  Company Number: US-PFIZER INC-2011032450

PATIENT
  Sex: Male
  Weight: 70.3 kg

DRUGS (4)
  1. METFORMIN [Concomitant]
     Dosage: 1000 MG, UNK
  2. ACETYLSALICYLIC ACID [Concomitant]
     Dosage: UNK, DAILY
  3. PAROXETINE [Concomitant]
     Dosage: UNK
  4. NEURONTIN [Suspect]
     Dosage: 300 MG, DAILY
     Route: 048

REACTIONS (1)
  - MYOCARDIAL INFARCTION [None]
